FAERS Safety Report 6155085-1 (Version None)
Quarter: 2009Q2

REPORT INFORMATION
  Report Type: 
  Country: None (occurrence: None)
  Receive Date: 20090410
  Receipt Date: 20090330
  Transmission Date: 20091009
  Serious: Yes (Death, Life-Threatening, Other)
  Sender: FDA-Public Use
  Company Number: ADE2009-0530

PATIENT
  Age: 2 Day
  Weight: 1.7 kg

DRUGS (6)
  1. CEFTRIAXONE INJECTABLE [Suspect]
     Dosage: 200MG - Q12 HOURS - IV
     Route: 042
  2. CALCIUM GLUCONATE [Suspect]
     Dosage: IV
     Route: 042
  3. MIDAZOLAM HCL [Concomitant]
  4. FUROSEMIDE [Concomitant]
  5. AMIKACIN [Concomitant]
  6. AMOXICILLIN [Concomitant]

REACTIONS (6)
  - CARDIO-RESPIRATORY ARREST NEONATAL [None]
  - CORONARY ARTERY THROMBOSIS [None]
  - LIVER DISORDER [None]
  - PULMONARY THROMBOSIS [None]
  - RENAL DISORDER [None]
  - THROMBOSIS [None]
